FAERS Safety Report 11705915 (Version 2)
Quarter: 2015Q4

REPORT INFORMATION
  Report Type: Spontaneous
  Country: US (occurrence: US)
  Receive Date: 20151106
  Receipt Date: 20151118
  Transmission Date: 20160304
  Serious: Yes (Other)
  Sender: FDA-Public Use
  Company Number: US-ASTRAZENECA-2015SF04238

PATIENT
  Age: 886 Month
  Sex: Male

DRUGS (8)
  1. XTANDI [Suspect]
     Active Substance: ENZALUTAMIDE
     Indication: PROSTATE CANCER
     Route: 065
     Dates: start: 20141212, end: 20141219
  2. TURMERIC [Suspect]
     Active Substance: TURMERIC
     Route: 065
  3. HERBAL NOS [Suspect]
     Active Substance: HERBALS
     Route: 065
  4. XTANDI [Suspect]
     Active Substance: ENZALUTAMIDE
     Indication: PROSTATE CANCER
     Route: 065
     Dates: start: 20141219, end: 201502
  5. ASPIRIN. [Suspect]
     Active Substance: ASPIRIN
     Route: 065
  6. CASODEX [Suspect]
     Active Substance: BICALUTAMIDE
     Route: 048
     Dates: start: 201302
  7. XTANDI [Suspect]
     Active Substance: ENZALUTAMIDE
     Indication: PROSTATE CANCER
     Route: 065
     Dates: start: 201502
  8. LUPRON [Suspect]
     Active Substance: LEUPROLIDE ACETATE
     Route: 065
     Dates: start: 201302

REACTIONS (6)
  - Malignant neoplasm progression [Unknown]
  - Underdose [Unknown]
  - Fatigue [Unknown]
  - Hypertension [Recovered/Resolved]
  - Hot flush [Unknown]
  - Haematuria [Recovering/Resolving]

NARRATIVE: CASE EVENT DATE: 201412
